FAERS Safety Report 6034422-2 (Version None)
Quarter: 2009Q1

REPORT INFORMATION
  Report Type: 
  Country: None (occurrence: None)
  Receive Date: 20090112
  Receipt Date: 20090107
  Transmission Date: 20090719
  Serious: Yes (Other)
  Sender: FDA-Public Use
  Company Number: B0515078A

PATIENT
  Age: 25 Year
  Sex: Female

DRUGS (2)
  1. HEPTODIN [Suspect]
     Dosage: 100MG PER DAY
     Route: 048
     Dates: start: 20071001
  2. COLD MEDICINE [Concomitant]
     Route: 065

REACTIONS (2)
  - ABORTION INDUCED [None]
  - DRUG EXPOSURE DURING PREGNANCY [None]
